FAERS Safety Report 12195276 (Version 4)
Quarter: 2016Q2

REPORT INFORMATION
  Report Type: Spontaneous
  Country: JP (occurrence: JP)
  Receive Date: 20160321
  Receipt Date: 20160420
  Transmission Date: 20160815
  Serious: Yes (Other)
  Sender: FDA-Public Use
  Company Number: PHJP2016JP005792

PATIENT
  Age: 16 Year
  Sex: Male

DRUGS (2)
  1. ARRANON [Suspect]
     Active Substance: NELARABINE
     Indication: ACUTE LYMPHOCYTIC LEUKAEMIA
     Dosage: UNK
     Route: 041
  2. BORTEZOMIB [Suspect]
     Active Substance: BORTEZOMIB
     Indication: ACUTE LYMPHOCYTIC LEUKAEMIA
     Dosage: UNK
     Route: 065

REACTIONS (8)
  - Muscle atrophy [Unknown]
  - Nervous system disorder [Unknown]
  - Muscular weakness [Unknown]
  - Decreased vibratory sense [Unknown]
  - Drug effect incomplete [Unknown]
  - Fall [Unknown]
  - Hyporeflexia [Unknown]
  - Diplegia [Unknown]
